FAERS Safety Report 10510665 (Version 1)
Quarter: 2014Q4

REPORT INFORMATION
  Report Type: Spontaneous
  Country: JP (occurrence: None)
  Receive Date: 20141008
  Receipt Date: 20141008
  Transmission Date: 20150528
  Serious: Yes (Death, Other)
  Sender: FDA-Public Use
  Company Number: INT_00438_2014

PATIENT
  Age: 60 Year
  Sex: Male

DRUGS (4)
  1. BEVACIZUMAB (BEVACIZUMAB) [Suspect]
     Active Substance: BEVACIZUMAB
     Indication: MALIGNANT NEOPLASM OF UNKNOWN PRIMARY SITE
     Dosage: FIVE CYCLES, SIX CYCLES OF MAINTENANCE THERAPY
  2. CARBOPLATIN (CARBOPLATIN) [Suspect]
     Active Substance: CARBOPLATIN
     Indication: MALIGNANT NEOPLASM OF UNKNOWN PRIMARY SITE
     Dosage: AUG 6
  3. ERLOTINIB [Suspect]
     Active Substance: ERLOTINIB
     Indication: MALIGNANT NEOPLASM OF UNKNOWN PRIMARY SITE
     Dosage: FIVE CYCLES, SIX CYCLES, OF MAINTENANCE THERAPY
  4. PACLITAXEL (PACLITAXEL) (HQ SPECIALTY) [Suspect]
     Active Substance: PACLITAXEL
     Indication: MALIGNANT NEOPLASM OF UNKNOWN PRIMARY SITE

REACTIONS (13)
  - Rash [None]
  - Neck pain [None]
  - Toxicity to various agents [None]
  - Stomatitis [None]
  - Dysgeusia [None]
  - Lymphadenopathy [None]
  - VIIth nerve paralysis [None]
  - Performance status decreased [None]
  - Malignant neoplasm progression [None]
  - Alanine aminotransferase increased [None]
  - Face oedema [None]
  - Neuropathy peripheral [None]
  - Malignant neoplasm of unknown primary site [None]
